FAERS Safety Report 24300372 (Version 1)
Quarter: 2024Q3

REPORT INFORMATION
  Report Type: Report from Study
  Country: CA (occurrence: CA)
  Receive Date: 20240909
  Receipt Date: 20240909
  Transmission Date: 20241017
  Serious: Yes (Hospitalization)
  Sender: AMGEN
  Company Number: CA-AMGEN-CANSL2024147465

PATIENT
  Age: 69 Year
  Sex: Female

DRUGS (2)
  1. AVSOLA [Suspect]
     Active Substance: INFLIXIMAB-AXXQ
     Indication: Rheumatoid arthritis
     Dosage: 300 MILLIGRAM, Q6WK
     Route: 065
     Dates: start: 20230914
  2. AVSOLA [Suspect]
     Active Substance: INFLIXIMAB-AXXQ
     Dosage: 300 MILLIGRAM, Q6WK
     Route: 065

REACTIONS (2)
  - Vertigo [Unknown]
  - Arthralgia [Unknown]
